FAERS Safety Report 6568711-X (Version None)
Quarter: 2010Q1

REPORT INFORMATION
  Report Type: 
  Country: None (occurrence: None)
  Receive Date: 20100203
  Receipt Date: 20100125
  Transmission Date: 20100710
  Serious: Yes (Hospitalization, Other)
  Sender: FDA-Public Use
  Company Number: PHEH2009US00449

PATIENT
  Sex: Male
  Weight: 444.44 kg

DRUGS (11)
  1. ELIDEL [Suspect]
     Indication: ECZEMA
     Dosage: UNK
     Route: 061
     Dates: start: 20051021
  2. PROTOPIC [Suspect]
     Indication: ECZEMA
     Dosage: UNK
     Route: 061
     Dates: start: 20040414
  3. DEPAKOTE [Concomitant]
  4. HYDROCODONE [Concomitant]
     Indication: PAIN
  5. LEVOXYL [Concomitant]
  6. ALLEGRA [Concomitant]
  7. CALCIUM CARBONATE [Concomitant]
  8. LYRICA [Concomitant]
  9. NEULASTA [Concomitant]
  10. LITHIUM [Concomitant]
     Indication: BIPOLAR DISORDER
  11. XANAX [Concomitant]

REACTIONS (47)
  - ABDOMINAL PAIN [None]
  - ABDOMINAL PAIN UPPER [None]
  - AGITATION [None]
  - ANAEMIA [None]
  - ARTERIOSCLEROSIS CORONARY ARTERY [None]
  - BACK PAIN [None]
  - BODY TINEA [None]
  - BRONCHOPNEUMONIA [None]
  - CATHETER PLACEMENT [None]
  - CONSTIPATION [None]
  - DIARRHOEA [None]
  - DISEASE RECURRENCE [None]
  - DIZZINESS [None]
  - DYSPEPSIA [None]
  - DYSPNOEA [None]
  - ERYTHEMA [None]
  - EXTRANODAL MARGINAL ZONE B-CELL LYMPHOMA (MALT TYPE) [None]
  - FALL [None]
  - FATIGUE [None]
  - FEBRILE NEUTROPENIA [None]
  - FOOD POISONING [None]
  - GASTRIC DISORDER [None]
  - GASTRIC MUCOSAL HYPERTROPHY [None]
  - GASTRITIS EROSIVE [None]
  - HAEMATOCHEZIA [None]
  - HEADACHE [None]
  - HIATUS HERNIA [None]
  - HYPOTHYROIDISM [None]
  - LEUKOPENIA [None]
  - LUNG INFILTRATION [None]
  - MENTAL STATUS CHANGES [None]
  - NAUSEA [None]
  - NEUROPATHY PERIPHERAL [None]
  - NEUTROPENIA [None]
  - NODULE [None]
  - NON-CARDIAC CHEST PAIN [None]
  - NON-HODGKIN'S LYMPHOMA [None]
  - OEDEMA PERIPHERAL [None]
  - PAIN IN EXTREMITY [None]
  - PLEURAL DISORDER [None]
  - POLLAKIURIA [None]
  - SYNCOPE [None]
  - TEMPORAL ARTERITIS [None]
  - THROMBOCYTOPENIA [None]
  - ULCER [None]
  - URINARY TRACT PAIN [None]
  - VOMITING [None]
